FAERS Safety Report 15436422 (Version 4)
Quarter: 2018Q4

REPORT INFORMATION
  Report Type: Spontaneous
  Country: IE (occurrence: IE)
  Receive Date: 20180927
  Receipt Date: 20181120
  Transmission Date: 20190204
  Serious: Yes (Death)
  Sender: FDA-Public Use
  Company Number: IE-PFIZER INC-2018389990

PATIENT
  Age: 28 Year
  Sex: Male

DRUGS (5)
  1. CANNABIS [Concomitant]
     Active Substance: CANNABIS SATIVA SUBSP. INDICA TOP
     Dosage: UNK
  2. ALCOHOL. [Concomitant]
     Active Substance: ALCOHOL
     Dosage: UNK
  3. TRAMADOL. [Suspect]
     Active Substance: TRAMADOL
     Dosage: UNK
  4. PREGABALIN. [Suspect]
     Active Substance: PREGABALIN
     Dosage: UNK
  5. DIAZEPAM. [Suspect]
     Active Substance: DIAZEPAM
     Dosage: UNK

REACTIONS (6)
  - Overdose [Fatal]
  - Toxicity to various agents [Fatal]
  - Abnormal behaviour [Unknown]
  - Upper airway obstruction [Fatal]
  - Aggression [Unknown]
  - Alcohol poisoning [Fatal]
